FAERS Safety Report 10094329 (Version 2)
Quarter: 2014Q2

REPORT INFORMATION
  Report Type: Spontaneous
  Country: US (occurrence: US)
  Receive Date: 20140422
  Receipt Date: 20140422
  Transmission Date: 20141212
  Serious: No
  Sender: FDA-Public Use
  Company Number: US-BRISTOL-MYERS SQUIBB COMPANY-19115104

PATIENT
  Age: 38 Year
  Sex: Male

DRUGS (1)
  1. DROXIA [Suspect]

REACTIONS (1)
  - Incorrect dose administered [Unknown]
